FAERS Safety Report 9916877 (Version 2)
Quarter: 2014Q1

REPORT INFORMATION
  Report Type: Spontaneous
  Country: BR (occurrence: BR)
  Receive Date: 20140221
  Receipt Date: 20140227
  Transmission Date: 20141002
  Serious: Yes (Other)
  Sender: FDA-Public Use
  Company Number: BR-AMGEN-BRASP2014012550

PATIENT
  Sex: Female

DRUGS (1)
  1. PROLIA [Suspect]
     Indication: OSTEOPOROSIS
     Dosage: 60 DF, UNK
     Route: 065
     Dates: start: 201306

REACTIONS (8)
  - Fatigue [Recovering/Resolving]
  - Paraesthesia [Recovering/Resolving]
  - Condition aggravated [Recovering/Resolving]
  - Hyperaesthesia [Recovering/Resolving]
  - Muscle spasticity [Recovering/Resolving]
  - Gait disturbance [Recovering/Resolving]
  - Dysgraphia [Recovering/Resolving]
  - Multiple sclerosis relapse [Recovering/Resolving]
